FAERS Safety Report 8124635-8 (Version None)
Quarter: 2012Q1

REPORT INFORMATION
  Report Type: 
  Country: None (occurrence: None)
  Receive Date: 20120209
  Receipt Date: 20120209
  Transmission Date: 20120608
  Serious: Yes (Disabling)
  Sender: FDA-Public Use
  Company Number: None

PATIENT
  Age: 36 Year
  Sex: Female
  Weight: 63.956 kg

DRUGS (1)
  1. DEXAMETHASONE [Suspect]
     Indication: BACK PAIN
     Route: 048
     Dates: start: 20100721, end: 20100725

REACTIONS (14)
  - PAIN IN EXTREMITY [None]
  - NODULE [None]
  - MENSTRUATION IRREGULAR [None]
  - CONDITION AGGRAVATED [None]
  - METRORRHAGIA [None]
  - ABDOMINAL DISTENSION [None]
  - ALOPECIA [None]
  - OVARIAN CYST [None]
  - MOOD SWINGS [None]
  - UTERINE DISORDER [None]
  - BACK PAIN [None]
  - BREAST SWELLING [None]
  - UTERINE LEIOMYOMA [None]
  - OVARIAN MASS [None]
